FAERS Safety Report 21467006 (Version 1)
Quarter: 2022Q4

REPORT INFORMATION
  Report Type: Report from Study
  Country: US (occurrence: US)
  Receive Date: 20221017
  Receipt Date: 20221017
  Transmission Date: 20230112
  Serious: Yes (Hospitalization, Other)
  Sender: FDA-Public Use
  Company Number: US-BoehringerIngelheim-2021-BI-081082

PATIENT
  Age: 70 Year
  Sex: Female

DRUGS (8)
  1. OFEV [Suspect]
     Active Substance: NINTEDANIB
     Indication: Idiopathic pulmonary fibrosis
     Route: 048
     Dates: start: 20210118, end: 20210309
  2. OFEV [Suspect]
     Active Substance: NINTEDANIB
     Dosage: LOT# 103702
     Route: 048
     Dates: start: 20210118, end: 202206
  3. OFEV [Suspect]
     Active Substance: NINTEDANIB
     Route: 048
     Dates: start: 202209
  4. IMODIUM [Suspect]
     Active Substance: LOPERAMIDE HYDROCHLORIDE
     Indication: Product used for unknown indication
     Route: 065
  5. METFORMIN [Suspect]
     Active Substance: METFORMIN HYDROCHLORIDE
     Indication: Product used for unknown indication
  6. CIPRO [Suspect]
     Active Substance: CIPROFLOXACIN HYDROCHLORIDE
     Indication: Infection
  7. ZOFRAN [Suspect]
     Active Substance: ONDANSETRON HYDROCHLORIDE
     Indication: Product used for unknown indication
  8. PROCHLORPERAZINE [Suspect]
     Active Substance: PROCHLORPERAZINE
     Indication: Product used for unknown indication

REACTIONS (41)
  - Bladder operation [Unknown]
  - Infection [Unknown]
  - Pelvic fracture [Unknown]
  - Bladder repair [Unknown]
  - Constipation [Recovered/Resolved]
  - Glycosylated haemoglobin increased [Unknown]
  - Malaise [Unknown]
  - Osteoporosis [Unknown]
  - Enterocele [Unknown]
  - Bladder prolapse [Unknown]
  - Diarrhoea [Unknown]
  - Constipation [Unknown]
  - Abdominal pain upper [Unknown]
  - Vomiting [Unknown]
  - Nausea [Unknown]
  - Asthenia [Unknown]
  - Dizziness [Unknown]
  - Escherichia infection [Unknown]
  - Abdominal pain [Not Recovered/Not Resolved]
  - Abdominal distension [Not Recovered/Not Resolved]
  - Asthenia [Unknown]
  - Spinal fracture [Unknown]
  - Weight decreased [Recovering/Resolving]
  - Cough [Not Recovered/Not Resolved]
  - Pneumonia [Unknown]
  - Bronchitis [Unknown]
  - COVID-19 [Unknown]
  - Dehydration [Unknown]
  - Abdominal discomfort [Unknown]
  - Hepatic enzyme increased [Recovered/Resolved]
  - Sneezing [Recovered/Resolved]
  - Otorrhoea [Recovered/Resolved]
  - Fatigue [Unknown]
  - Depression [Recovering/Resolving]
  - Somnolence [Unknown]
  - Flatulence [Unknown]
  - Vomiting [Recovered/Resolved]
  - Multiple allergies [Unknown]
  - Rhinorrhoea [Recovered/Resolved]
  - Hypertension [Unknown]
  - Liver function test increased [Unknown]

NARRATIVE: CASE EVENT DATE: 20210101
